FAERS Safety Report 16691408 (Version 1)
Quarter: 2019Q3

REPORT INFORMATION
  Report Type: Spontaneous
  Country: GB (occurrence: GB)
  Receive Date: 20190812
  Receipt Date: 20190812
  Transmission Date: 20191004
  Serious: Yes (Death, Other)
  Sender: FDA-Public Use
  Company Number: GB-ROCHE-2350685

PATIENT
  Sex: Female

DRUGS (1)
  1. HERCEPTIN [Suspect]
     Active Substance: TRASTUZUMAB
     Indication: BREAST CANCER
     Route: 065

REACTIONS (9)
  - Death [Fatal]
  - Arthralgia [Unknown]
  - Pneumonia [Unknown]
  - Sepsis [Unknown]
  - Malaise [Unknown]
  - Alopecia [Unknown]
  - Lung infection [Unknown]
  - Joint swelling [Unknown]
  - Condition aggravated [Unknown]
